FAERS Safety Report 8613783 (Version 4)
Quarter: 2012Q4

REPORT INFORMATION
  Report Type: 
  Country: US (occurrence: US)
  Receive Date: 20120614
  Receipt Date: 20121211
  Transmission Date: 20130627
  Serious: No
  Sender: FDA-Public Use
  Company Number: US-PFIZER INC-2012140141

PATIENT
  Age: 77 Year
  Sex: Female

DRUGS (5)
  1. SUTENT [Suspect]
     Indication: RENAL CELL CARCINOMA
     Dosage: 50 mg, 2 weeks on 1 off
     Route: 048
     Dates: start: 201105, end: 20121013
  2. METOPROLOL [Concomitant]
  3. LEVOTHYROXINE [Concomitant]
  4. OMEPRAZOLE [Concomitant]
     Dosage: UNK
  5. OMEGA 3 [Concomitant]
     Dosage: UNK

REACTIONS (7)
  - Skin ulcer [Recovered/Resolved]
  - Pain in extremity [Recovered/Resolved]
  - Oral pain [Recovered/Resolved]
  - Diarrhoea [Recovered/Resolved]
  - Wound [Unknown]
  - Skin discolouration [Unknown]
  - Skin ulcer [Not Recovered/Not Resolved]
